FAERS Safety Report 8006722-8 (Version None)
Quarter: 2011Q4

REPORT INFORMATION
  Report Type: 
  Country: None (occurrence: None)
  Receive Date: 20111227
  Receipt Date: 20111216
  Transmission Date: 20120403
  Serious: Yes (Other)
  Sender: FDA-Public Use
  Company Number: FR-JNJFOC-20111202092

PATIENT
  Age: 32 Year
  Sex: Female
  Weight: 45 kg

DRUGS (3)
  1. REMICADE [Suspect]
     Route: 042
     Dates: start: 20070101
  2. REMICADE [Suspect]
     Indication: CROHN'S DISEASE
     Route: 042
     Dates: start: 20090310, end: 20110705
  3. CONTRACEPTIVE IMPLANT [Concomitant]
     Indication: CONTRACEPTION
     Route: 019
     Dates: end: 20111001

REACTIONS (3)
  - ARTHRALGIA [None]
  - PAPILLOMA VIRAL INFECTION [None]
  - CERVIX CARCINOMA [None]
